FAERS Safety Report 4818402-8 (Version None)
Quarter: 2005Q4

REPORT INFORMATION
  Report Type: 
  Country: None (occurrence: None)
  Receive Date: 20051031
  Receipt Date: 20051020
  Transmission Date: 20060501
  Serious: Yes (Life-Threatening, Hospitalization)
  Sender: FDA-Public Use
  Company Number: 2005-10-0628

PATIENT
  Age: 54 Year
  Sex: Female

DRUGS (2)
  1. TEMODAL [Suspect]
     Indication: GLIOBLASTOMA
     Dosage: 75 MG/M^2 ORAL
     Route: 048
     Dates: start: 20050701
  2. RADIATION THERAPY NO DOSE FORM [Suspect]
     Indication: GLIOBLASTOMA
     Dosage: X-RAY THERAPY

REACTIONS (4)
  - APLASTIC ANAEMIA [None]
  - DRUG DOSE OMISSION [None]
  - FEBRILE NEUTROPENIA [None]
  - SEPSIS [None]
